FAERS Safety Report 9341883 (Version 1)
Quarter: 2013Q2

REPORT INFORMATION
  Report Type: Spontaneous
  Country: US (occurrence: US)
  Receive Date: 20130611
  Receipt Date: 20130611
  Transmission Date: 20140414
  Serious: Yes (Disabling, Other)
  Sender: FDA-Public Use
  Company Number: US-PFIZER INC-2013173227

PATIENT
  Age: 45 Year
  Sex: Female

DRUGS (1)
  1. CELEBREX [Suspect]
     Indication: RHEUMATOID ARTHRITIS
     Dosage: UNK

REACTIONS (6)
  - Toxic epidermal necrolysis [Unknown]
  - Thermal burn [Unknown]
  - Traumatic lung injury [Unknown]
  - Eye injury [Unknown]
  - Coma [Unknown]
  - Pain [Unknown]
